FAERS Safety Report 24073169 (Version 1)
Quarter: 2024Q3

REPORT INFORMATION
  Report Type: Spontaneous
  Country: IT (occurrence: IT)
  Receive Date: 20240710
  Receipt Date: 20240710
  Transmission Date: 20241017
  Serious: Yes (Life-Threatening, Hospitalization)
  Sender: MYLAN
  Company Number: IT-MYLANLABS-2024M1064057

PATIENT
  Age: 39 Year
  Sex: Female

DRUGS (1)
  1. SERTRALINE [Suspect]
     Active Substance: SERTRALINE HYDROCHLORIDE
     Indication: Affective disorder
     Dosage: RECEIVING SINCE 1 MONTH BEFORE PRESENTATION
     Route: 065

REACTIONS (2)
  - Sinus arrest [Recovered/Resolved]
  - Off label use [Unknown]
